FAERS Safety Report 6900727-3 (Version None)
Quarter: 2010Q3

REPORT INFORMATION
  Report Type: 
  Country: None (occurrence: None)
  Receive Date: 20100730
  Receipt Date: 20100716
  Transmission Date: 20110219
  Serious: Yes (Other)
  Sender: FDA-Public Use
  Company Number: IT-1182681

PATIENT
  Age: 70 Year
  Sex: Male

DRUGS (10)
  1. PATANOL [Suspect]
     Indication: EYE ALLERGY
     Dosage: 1 GTT OU
     Route: 047
     Dates: start: 20100715, end: 20100715
  2. NORVASC [Concomitant]
  3. ASPIRIN [Concomitant]
  4. TERAZOSIN HCL [Concomitant]
  5. LASIX [Concomitant]
  6. LOPRESSOR [Concomitant]
  7. SINTROM [Concomitant]
  8. COAPROVEL [Concomitant]
  9. REPAGLINIDE [Concomitant]
  10. EN (DELORAZEPAM) [Concomitant]

REACTIONS (3)
  - BLOOD PRESSURE INCREASED [None]
  - HYPERHIDROSIS [None]
  - TREMOR [None]
